FAERS Safety Report 21474972 (Version 1)
Quarter: 2022Q4

REPORT INFORMATION
  Report Type: Spontaneous
  Country: US (occurrence: US)
  Receive Date: 20221019
  Receipt Date: 20221019
  Transmission Date: 20230112
  Serious: Yes (Other)
  Sender: FDA-Public Use
  Company Number: US-SUN PHARMACEUTICAL INDUSTRIES LTD-2022R1-359288

PATIENT
  Sex: Male
  Weight: 6 kg

DRUGS (2)
  1. VECURONIUM [Suspect]
     Active Substance: VECURONIUM BROMIDE
     Indication: Product used for unknown indication
     Dosage: UNK,1 MCG/KG/ MIN (0.06 MG/KG/HR)
     Route: 065
  2. VECURONIUM [Suspect]
     Active Substance: VECURONIUM BROMIDE
     Dosage: UNK TITRATED UP TO 5 MCG/KG/MIN (0.3 MG/KG/HR)
     Route: 065

REACTIONS (1)
  - Neuromuscular blockade [Recovered/Resolved]
